FAERS Safety Report 13057471 (Version 4)
Quarter: 2017Q1

REPORT INFORMATION
  Report Type: Report from Study
  Country: PT (occurrence: PT)
  Receive Date: 20161223
  Receipt Date: 20170126
  Transmission Date: 20170428
  Serious: Yes (Hospitalization)
  Sender: FDA-Public Use
  Company Number: PT-ROCHE-1853487

PATIENT
  Age: 74 Year
  Sex: Female

DRUGS (52)
  1. PAMIDRONATO [Concomitant]
     Active Substance: PAMIDRONATE DISODIUM
     Route: 065
     Dates: start: 20161109
  2. METOCLOPRAMIDE. [Concomitant]
     Active Substance: METOCLOPRAMIDE
     Route: 065
     Dates: start: 20161105
  3. PARACETAMOL [Concomitant]
     Active Substance: ACETAMINOPHEN
     Route: 065
     Dates: start: 20140526, end: 20140526
  4. COMBIGAN [Concomitant]
     Active Substance: BRIMONIDINE TARTRATE\TIMOLOL MALEATE
     Dosage: 2+5 MG/ML
     Route: 065
     Dates: start: 20140624
  5. TANTUM (BENZYDAMINE HYDROCHLORIDE) [Concomitant]
     Dosage: MOUTH WASH
     Route: 065
     Dates: start: 20140605
  6. FUCICORT [Concomitant]
     Active Substance: BETAMETHASONE VALERATE\FUSIDIC ACID
     Route: 065
     Dates: start: 20160312, end: 20160319
  7. FOLIFER (PORTUGAL) [Concomitant]
     Dosage: 1 MG + 90 MG
     Route: 065
     Dates: start: 20161128
  8. SYMBICORT [Concomitant]
     Active Substance: BUDESONIDE\FORMOTEROL FUMARATE DIHYDRATE
     Dosage: 160+4.5UG/BID
     Route: 065
     Dates: start: 2009
  9. LEPICORTINOLO [Concomitant]
     Active Substance: PREDNISOLONE
     Route: 065
     Dates: start: 20140402, end: 20140512
  10. MAGNESIOCARD [Concomitant]
     Active Substance: MAGNESIUM ASPARTATE HYDROCHLORIDE
     Route: 065
     Dates: start: 20160118
  11. FURADANTINE [Concomitant]
     Active Substance: NITROFURANTOIN
     Route: 065
     Dates: start: 20161128
  12. ARCOXIA [Concomitant]
     Active Substance: ETORICOXIB
     Route: 065
     Dates: start: 20140515, end: 20140522
  13. VENTILAN [Concomitant]
     Active Substance: ALBUTEROL SULFATE
     Dosage: 15 MG/ML
     Route: 065
     Dates: start: 20140402
  14. CODIPRONT (CODEINE/PHENYLTOLOXAMINE) [Concomitant]
     Dosage: 30+10/MG
     Route: 065
     Dates: start: 20140416
  15. FUROSEMIDE. [Concomitant]
     Active Substance: FUROSEMIDE
     Route: 065
     Dates: start: 20140416
  16. CIPROFLOXACIN. [Concomitant]
     Active Substance: CIPROFLOXACIN
     Route: 065
     Dates: start: 20140529, end: 20140605
  17. SPASMOPLEX [Concomitant]
     Active Substance: TROSPIUM CHLORIDE
     Route: 065
     Dates: start: 20140914
  18. AMOXICILLIN/CLAVULANATE [Concomitant]
     Active Substance: AMOXICILLIN\CLAVULANATE POTASSIUM
     Dosage: 875+125MG
     Route: 065
     Dates: start: 20140801, end: 20140807
  19. PERTUZUMAB [Suspect]
     Active Substance: PERTUZUMAB
     Indication: HER-2 POSITIVE BREAST CANCER
     Dosage: LOADING DOSE.
     Route: 042
     Dates: start: 20140508, end: 20140508
  20. TRAMAL RETARD [Concomitant]
     Active Substance: TRAMADOL
     Route: 065
     Dates: start: 20140416
  21. OMEPRAZOLE. [Concomitant]
     Active Substance: OMEPRAZOLE
     Route: 065
     Dates: start: 20140402
  22. IBUPROFEN. [Concomitant]
     Active Substance: IBUPROFEN
     Route: 065
     Dates: start: 20140211
  23. PERINDOPRIL [Concomitant]
     Active Substance: PERINDOPRIL
     Route: 065
     Dates: start: 1994
  24. FLOXAPEN [Concomitant]
     Active Substance: FLUCLOXACILLIN
     Route: 065
     Dates: start: 20160321
  25. FLOXAPEN [Concomitant]
     Active Substance: FLUCLOXACILLIN
     Route: 065
     Dates: start: 20150102, end: 20150109
  26. METFORMIN [Concomitant]
     Active Substance: METFORMIN HYDROCHLORIDE
     Route: 065
     Dates: start: 20140619, end: 20140807
  27. PERTUZUMAB [Suspect]
     Active Substance: PERTUZUMAB
     Dosage: MAINTANENCE DOSE, DATE OF LAST DOSE PRIOR TO PYELONEPHRITIS ON 31/OCT/2016
     Route: 042
     Dates: start: 20140529
  28. METOCLOPRAMIDE. [Concomitant]
     Active Substance: METOCLOPRAMIDE
     Route: 065
     Dates: start: 20160118
  29. LATANOPROST. [Concomitant]
     Active Substance: LATANOPROST
     Route: 065
     Dates: start: 20140624
  30. MYCOSTATIN [Concomitant]
     Active Substance: NYSTATIN
     Route: 065
     Dates: start: 20140417
  31. DAFLON [Concomitant]
     Active Substance: DIOSMIN\HESPERIDIN
     Route: 065
     Dates: start: 20150102
  32. FUCICORT [Concomitant]
     Active Substance: BETAMETHASONE VALERATE\FUSIDIC ACID
     Route: 065
     Dates: start: 20160321, end: 20160321
  33. FURADANTINE [Concomitant]
     Active Substance: NITROFURANTOIN
     Route: 065
     Dates: start: 20161109
  34. PALEXIA [Concomitant]
     Active Substance: TAPENTADOL HYDROCHLORIDE
     Route: 065
     Dates: start: 20160208
  35. CIPROFLOXACIN. [Concomitant]
     Active Substance: CIPROFLOXACIN
     Route: 065
     Dates: start: 20140825, end: 20140908
  36. LEPICORTINOLO [Concomitant]
     Active Substance: PREDNISOLONE
     Route: 065
     Dates: start: 20140513, end: 20140806
  37. OXYTETRACYCLINE HYDROCHLORIDE [Concomitant]
     Active Substance: OXYTETRACYCLINE HYDROCHLORIDE
     Route: 065
     Dates: start: 20140626, end: 20140710
  38. TRASTUZUMAB [Suspect]
     Active Substance: TRASTUZUMAB
     Indication: HER-2 POSITIVE BREAST CANCER
     Dosage: LOADING DOSE.
     Route: 042
  39. TRASTUZUMAB [Suspect]
     Active Substance: TRASTUZUMAB
     Dosage: MAINTANENCE DOSE, DATE OF LAST DOSE PRIOR TO PYELONEPHRITIS ON 31/OCT/2016
     Route: 042
  40. PALEXIA [Concomitant]
     Active Substance: TAPENTADOL HYDROCHLORIDE
     Route: 065
     Dates: start: 20161109
  41. LOPERAMIDE [Concomitant]
     Active Substance: LOPERAMIDE
     Dosage: 2 MG AS NEED
     Route: 065
     Dates: start: 20140626
  42. CIPROFLOXACIN. [Concomitant]
     Active Substance: CIPROFLOXACIN
     Route: 065
     Dates: start: 20140730, end: 20140730
  43. LEPICORTINOLO [Concomitant]
     Active Substance: PREDNISOLONE
     Route: 065
     Dates: start: 20140828
  44. LAEVOLAC [Concomitant]
     Active Substance: LACTULOSE
     Dosage: 10.0 G / 15 ML
     Route: 065
     Dates: start: 20160118
  45. NYSTATIN. [Concomitant]
     Active Substance: NYSTATIN
     Dosage: 100.000 UI/ML
     Route: 065
     Dates: start: 20160704
  46. FURADANTINE [Concomitant]
     Active Substance: NITROFURANTOIN
     Route: 065
     Dates: start: 20160321, end: 20160328
  47. LETROZOL [Suspect]
     Active Substance: LETROZOLE
     Indication: HER-2 POSITIVE BREAST CANCER
     Route: 065
     Dates: start: 20161109
  48. PARACETAMOL [Concomitant]
     Active Substance: ACETAMINOPHEN
     Route: 065
     Dates: start: 20140211
  49. PERINDOPRIL [Concomitant]
     Active Substance: PERINDOPRIL
     Route: 065
     Dates: start: 20161109
  50. LEPICORTINOLO [Concomitant]
     Active Substance: PREDNISOLONE
     Route: 065
     Dates: start: 20140807, end: 20140827
  51. FURADANTIN RETARD [Concomitant]
     Route: 065
     Dates: start: 20161031
  52. AMOXICILLIN/CLAVULANATE [Concomitant]
     Active Substance: AMOXICILLIN\CLAVULANATE POTASSIUM
     Dosage: 875+125 MG
     Route: 065
     Dates: start: 20140529, end: 20140605

REACTIONS (1)
  - Pyelonephritis [Recovered/Resolved]

NARRATIVE: CASE EVENT DATE: 20161109
